FAERS Safety Report 23911327 (Version 1)
Quarter: 2024Q2

REPORT INFORMATION
  Report Type: Spontaneous
  Country: US (occurrence: US)
  Receive Date: 20240528
  Receipt Date: 20240528
  Transmission Date: 20240716
  Serious: Yes (Other)
  Sender: FDA-Public Use
  Company Number: US-PFIZER INC-202400175930

PATIENT
  Age: 25 Year
  Sex: Female
  Weight: 123.38 kg

DRUGS (1)
  1. TESTOSTERONE CYPIONATE [Suspect]
     Active Substance: TESTOSTERONE CYPIONATE
     Indication: Hormone replacement therapy
     Dosage: 0.3ML OR 60MG ONCE WEEKLY

REACTIONS (10)
  - Injection site reaction [Recovering/Resolving]
  - Injection site mass [Recovering/Resolving]
  - Injection site induration [Recovering/Resolving]
  - Injection site pain [Unknown]
  - Nausea [Recovered/Resolved]
  - Vomiting [Recovered/Resolved]
  - Product colour issue [Unknown]
  - Poor quality product administered [Unknown]
  - Off label use [Unknown]
  - Product use issue [Unknown]

NARRATIVE: CASE EVENT DATE: 20240523
